FAERS Safety Report 11185101 (Version 1)
Quarter: 2015Q2

REPORT INFORMATION
  Report Type: Spontaneous
  Country: VN (occurrence: VN)
  Receive Date: 20150612
  Receipt Date: 20150612
  Transmission Date: 20150821
  Serious: Yes (Life-Threatening)
  Sender: FDA-Public Use
  Company Number: VN-PFIZER INC-2015197479

PATIENT
  Age: 6 Month
  Sex: Male
  Weight: 6 kg

DRUGS (4)
  1. BRICANYL [Concomitant]
     Active Substance: TERBUTALINE SULFATE
     Dosage: UNK
     Dates: start: 20150605, end: 20150605
  2. CEFOBID [Suspect]
     Active Substance: CEFOPERAZONE
     Indication: PNEUMONIA
     Dosage: 600 MG (100MG/KG/DAY), 2X/DAY
     Route: 042
     Dates: start: 20150605, end: 20150605
  3. CEFOBID [Suspect]
     Active Substance: CEFOPERAZONE
     Indication: BRONCHITIS
  4. METROGYL DENTA [Concomitant]
     Dosage: UNK
     Route: 048
     Dates: start: 20150605, end: 20150605

REACTIONS (4)
  - Erythema [Recovered/Resolved]
  - Dyspnoea [Recovered/Resolved]
  - Dry skin [Recovered/Resolved]
  - Pulse absent [Recovered/Resolved]

NARRATIVE: CASE EVENT DATE: 20150605
